FAERS Safety Report 14620749 (Version 4)
Quarter: 2018Q1

REPORT INFORMATION
  Report Type: Spontaneous
  Country: JP (occurrence: JP)
  Receive Date: 20180309
  Receipt Date: 20180327
  Transmission Date: 20180509
  Serious: Yes (Death, Other)
  Sender: FDA-Public Use
  Company Number: PHJP2018JP005558

PATIENT
  Age: 73 Year
  Sex: Male

DRUGS (1)
  1. SANDIMMUN INFUSION [Suspect]
     Active Substance: CYCLOSPORINE
     Indication: SYSTEMIC INFLAMMATORY RESPONSE SYNDROME
     Dosage: UNK
     Route: 041

REACTIONS (5)
  - Respiratory failure [Fatal]
  - Sepsis [Fatal]
  - Product use in unapproved indication [Unknown]
  - Systemic inflammatory response syndrome [Fatal]
  - Device related infection [Unknown]

NARRATIVE: CASE EVENT DATE: 201801
